FAERS Safety Report 11291791 (Version 3)
Quarter: 2016Q1

REPORT INFORMATION
  Report Type: Spontaneous
  Country: US (occurrence: US)
  Receive Date: 20150722
  Receipt Date: 20160318
  Transmission Date: 20160525
  Serious: Yes (Hospitalization)
  Sender: FDA-Public Use
  Company Number: US-ACTAVIS-2015-15069

PATIENT
  Age: 16 Year
  Sex: Female
  Weight: 59 kg

DRUGS (3)
  1. CYCLOBENZAPRINE HYDROCHLORIDE (ACTAVIS LABORATORIES FL) [Suspect]
     Active Substance: CYCLOBENZAPRINE HYDROCHLORIDE
     Indication: PRODUCT USED FOR UNKNOWN INDICATION
     Dosage: 120 MG (2 MG/KG)
     Route: 048
  2. LEVETIRACETAM (WATSON LABORATORIES) [Suspect]
     Active Substance: LEVETIRACETAM
     Indication: PRODUCT USED FOR UNKNOWN INDICATION
     Dosage: AN UNKNOWN AMOUNT OF LEVETIRACETAM
     Route: 048
  3. LACOSAMIDE [Suspect]
     Active Substance: LACOSAMIDE
     Indication: PRODUCT USED FOR UNKNOWN INDICATION
     Dosage: 4.5 G (76 MG/KG)
     Route: 048

REACTIONS (11)
  - Ventricular fibrillation [Recovered/Resolved]
  - Intentional overdose [Recovered/Resolved]
  - Sinus tachycardia [Recovered/Resolved]
  - Respiratory acidosis [Recovered/Resolved]
  - Generalised tonic-clonic seizure [Recovered/Resolved]
  - QRS axis abnormal [Recovered/Resolved]
  - Cardiac arrest [Recovered/Resolved]
  - Pneumonia [Recovered/Resolved]
  - Metabolic acidosis [Recovered/Resolved]
  - Electrocardiogram QRS complex prolonged [Recovered/Resolved]
  - Intentional self-injury [Recovered/Resolved]
